FAERS Safety Report 10506995 (Version 1)
Quarter: 2014Q4

REPORT INFORMATION
  Report Type: Spontaneous
  Country: JP (occurrence: JP)
  Receive Date: 20141009
  Receipt Date: 20141009
  Transmission Date: 20150528
  Serious: Yes (Other)
  Sender: FDA-Public Use
  Company Number: JP-JNJFOC-20141000212

PATIENT
  Sex: Male

DRUGS (2)
  1. ITRIZOLE [Suspect]
     Active Substance: ITRACONAZOLE
     Indication: FUNGAL TEST POSITIVE
     Route: 048
     Dates: end: 20140924
  2. ITRIZOLE [Suspect]
     Active Substance: ITRACONAZOLE
     Indication: PULMONARY MYCOSIS
     Route: 048
     Dates: end: 20140924

REACTIONS (5)
  - Malaise [Unknown]
  - Dry mouth [Unknown]
  - Pollakiuria [Unknown]
  - Blood glucose increased [Unknown]
  - Weight decreased [Unknown]

NARRATIVE: CASE EVENT DATE: 201409
